FAERS Safety Report 8840092 (Version 1)
Quarter: 2012Q4

REPORT INFORMATION
  Report Type: 
  Country: US (occurrence: US)
  Receive Date: 20121015
  Receipt Date: 20121015
  Transmission Date: 20130627
  Serious: Yes (Other)
  Sender: FDA-Public Use
  Company Number: US-ROCHE-1142864

PATIENT

DRUGS (1)
  1. ROCEPHIN [Suspect]
     Indication: MENINGITIS BORRELIA

REACTIONS (7)
  - Cholelithiasis [Unknown]
  - Clostridium difficile colitis [Unknown]
  - Lymphadenitis [Unknown]
  - Rash [Unknown]
  - Pyrexia [Unknown]
  - Chest pain [Unknown]
  - Headache [Unknown]
